FAERS Safety Report 26019776 (Version 1)
Quarter: 2025Q4

REPORT INFORMATION
  Report Type: Spontaneous
  Country: US (occurrence: US)
  Receive Date: 20251110
  Receipt Date: 20251110
  Transmission Date: 20260118
  Serious: No
  Sender: ABBVIE
  Company Number: US-ABBVIE-6532090

PATIENT
  Sex: Male

DRUGS (1)
  1. OXYTROL [Suspect]
     Active Substance: OXYBUTYNIN
     Indication: Hypertonic bladder
     Route: 065

REACTIONS (4)
  - Hypertonic bladder [Not Recovered/Not Resolved]
  - Therapeutic product effect decreased [Unknown]
  - Administration site erythema [Unknown]
  - Administration site pruritus [Unknown]
